FAERS Safety Report 22013924 (Version 5)
Quarter: 2023Q2

REPORT INFORMATION
  Report Type: Report from Study
  Country: FR (occurrence: FR)
  Receive Date: 20230221
  Receipt Date: 20230628
  Transmission Date: 20230722
  Serious: Yes (Hospitalization, Other)
  Sender: FDA-Public Use
  Company Number: FR-BRISTOL-MYERS SQUIBB COMPANY-2023-021216

PATIENT
  Age: 63 Year
  Sex: Female
  Weight: 92 kg

DRUGS (7)
  1. LENALIDOMIDE [Suspect]
     Active Substance: LENALIDOMIDE
     Indication: Central nervous system lymphoma
     Dosage: ROUTE: O, EVENT CYCLE NUMBER: 1
     Route: 048
     Dates: start: 20230116, end: 20230205
  2. METHOTREXATE [Suspect]
     Active Substance: METHOTREXATE
     Indication: Central nervous system lymphoma
     Dosage: ROUTE: O, EVENT CYCLE NUMBER: 1
     Route: 042
     Dates: start: 20230116, end: 20230131
  3. RITUXIMAB [Suspect]
     Active Substance: RITUXIMAB
     Indication: Central nervous system lymphoma
     Dosage: ROUTE: O, EVENT CYCLE NUMBER: 1
     Route: 042
     Dates: start: 20230116, end: 20230116
  4. PROCARBAZINE [Suspect]
     Active Substance: PROCARBAZINE
     Indication: Central nervous system lymphoma
     Dosage: ROUTE: O, EVENT CYCLE NUMBER: 1
     Route: 048
     Dates: start: 20230116, end: 20230123
  5. VINCRISTINE [Suspect]
     Active Substance: VINCRISTINE
     Indication: Central nervous system lymphoma
     Dosage: ROUTE: O, EVENT CYCLE NUMBER: 1
     Route: 042
     Dates: start: 20230116, end: 20230130
  6. PREDNISOLONE [Concomitant]
     Active Substance: PREDNISOLONE
     Indication: Product used for unknown indication
     Dosage: CUMULATIVE DOSE- 300 MG
     Route: 048
     Dates: start: 20230120
  7. PREDNISOLONE [Concomitant]
     Active Substance: PREDNISOLONE
     Route: 048
     Dates: start: 20230116

REACTIONS (3)
  - Febrile bone marrow aplasia [Recovered/Resolved]
  - Mucosal inflammation [Recovered/Resolved]
  - Thrombocytopenia [Recovered/Resolved]

NARRATIVE: CASE EVENT DATE: 20230207
